FAERS Safety Report 6051883-3 (Version None)
Quarter: 2009Q1

REPORT INFORMATION
  Report Type: 
  Country: None (occurrence: None)
  Receive Date: 20090126
  Receipt Date: 20051214
  Transmission Date: 20090719
  Serious: Yes (Hospitalization)
  Sender: FDA-Public Use
  Company Number: US-PFIZER INC-2008159935

PATIENT
  Sex: Male

DRUGS (14)
  1. CELECOXIB [Suspect]
     Dosage: 400 MG, 2X/DAY
     Dates: start: 20000926, end: 20030123
  2. ASPIRIN [Concomitant]
     Dosage: UNK
  3. GLIPIZIDE [Concomitant]
     Dosage: UNK
  4. PROZAC [Concomitant]
     Dosage: UNK
  5. FOLIC ACID [Concomitant]
     Dosage: UNK
  6. CENTRUM SILVER [Concomitant]
     Dosage: UNK
  7. VITAMIN E [Concomitant]
     Dosage: UNK
  8. ASCORBIC ACID [Concomitant]
  9. VITAMIN B COMPLEX CAP [Concomitant]
  10. AVANDIA [Concomitant]
     Dosage: UNK
  11. LIPITOR [Concomitant]
     Dosage: UNK
     Dates: start: 20020508
  12. NEXIUM [Concomitant]
     Dosage: UNK
  13. AVALIDE [Concomitant]
     Dosage: UNK
     Dates: end: 20030110
  14. HYDROCHLOROTHIAZIDE [Concomitant]

REACTIONS (1)
  - CEREBROVASCULAR ACCIDENT [None]
